FAERS Safety Report 5134933-8 (Version None)
Quarter: 2006Q4

REPORT INFORMATION
  Report Type: 
  Country: None (occurrence: None)
  Receive Date: 20061025
  Receipt Date: 20061009
  Transmission Date: 20070319
  Serious: Yes (Hospitalization)
  Sender: FDA-Public Use
  Company Number: PHNU2006DE03376

PATIENT
  Sex: Female
  Weight: 45 kg

DRUGS (5)
  1. MYFORTIC [Suspect]
     Indication: RENAL TRANSPLANT
     Dosage: UNK, UNK
     Route: 048
     Dates: start: 20050601
  2. PROGRAF [Concomitant]
  3. DECORTIN-H [Concomitant]
  4. NORVASK [Concomitant]
  5. LOCOL [Concomitant]

REACTIONS (5)
  - COELIAC DISEASE [None]
  - DIARRHOEA [None]
  - INTESTINAL VILLI ATROPHY [None]
  - NAUSEA [None]
  - WEIGHT DECREASED [None]
